FAERS Safety Report 8847207 (Version 1)
Quarter: 2012Q4

REPORT INFORMATION
  Report Type: 
  Country: US (occurrence: US)
  Receive Date: 20121018
  Receipt Date: 20121018
  Transmission Date: 20130627
  Serious: No
  Sender: FDA-Public Use
  Company Number: US-TEVA-364676USA

PATIENT
  Sex: Male

DRUGS (2)
  1. QVAR [Suspect]
  2. PROAIR [Concomitant]

REACTIONS (1)
  - Therapeutic response unexpected [Unknown]
